FAERS Safety Report 8844389 (Version 1)
Quarter: 2012Q4

REPORT INFORMATION
  Report Type: Spontaneous
  Country: US (occurrence: None)
  Receive Date: 20121016
  Receipt Date: 20121016
  Transmission Date: 20130627
  Serious: Yes (Hospitalization)
  Sender: FDA-Public Use
  Company Number: None

PATIENT
  Age: 49 Year
  Sex: Male
  Weight: 57 kg

DRUGS (14)
  1. NPH INSULIN [Suspect]
     Indication: DIABETES
     Dosage: 50 units BID,SQ
     Route: 058
  2. HUMALOG INSULIN [Suspect]
     Indication: DIABETES
     Dosage: SS, SQ
     Route: 058
  3. PERCOCET [Concomitant]
  4. ASPIRIN [Concomitant]
  5. CEFTAZIDIME [Concomitant]
  6. PLAVIX [Concomitant]
  7. FOSRENOL [Concomitant]
  8. VANCOMYCIN [Concomitant]
  9. LEVOTHYROXINE [Concomitant]
  10. REGLAN [Concomitant]
  11. RENA-VITE [Concomitant]
  12. OXYCONTIN [Concomitant]
  13. OXYCONTIN [Concomitant]
  14. PRAVACHOL [Concomitant]

REACTIONS (7)
  - Hypoglycaemia [None]
  - Hypothermia [None]
  - Hypotension [None]
  - Endocarditis [None]
  - Gangrene [None]
  - General physical condition abnormal [None]
  - Mental status changes [None]
